FAERS Safety Report 25685667 (Version 4)
Quarter: 2025Q4

REPORT INFORMATION
  Report Type: Spontaneous
  Country: US (occurrence: US)
  Receive Date: 20250815
  Receipt Date: 20251008
  Transmission Date: 20260118
  Serious: No
  Sender: PFIZER
  Company Number: US-PFIZER INC-202500161312

PATIENT
  Age: 15 Year
  Sex: Male

DRUGS (2)
  1. GENOTROPIN [Suspect]
     Active Substance: SOMATROPIN
     Dosage: 2.2MG, 6 DAYS A WEEK
     Dates: start: 202312
  2. GENOTROPIN [Suspect]
     Active Substance: SOMATROPIN
     Dosage: 2.0 MG, 6 DAYS A WEEK

REACTIONS (3)
  - Device information output issue [Unknown]
  - Product storage error [Unknown]
  - Drug dose omission by device [Unknown]
